FAERS Safety Report 11887897 (Version 1)
Quarter: 2016Q1

REPORT INFORMATION
  Report Type: Spontaneous
  Country: US (occurrence: US)
  Receive Date: 20160105
  Receipt Date: 20160105
  Transmission Date: 20160526
  Serious: No
  Sender: FDA-Public Use
  Company Number: US-DRREDDYS-USA/USA/15/0048495

PATIENT
  Sex: Male

DRUGS (1)
  1. HABITROL [Suspect]
     Active Substance: NICOTINE
     Indication: SMOKING CESSATION THERAPY
     Route: 062

REACTIONS (5)
  - Nicotine dependence [Recovered/Resolved]
  - Dizziness [Recovered/Resolved]
  - Drug effect increased [Unknown]
  - Pruritus [Recovered/Resolved]
  - Treatment noncompliance [Unknown]
